FAERS Safety Report 14008089 (Version 1)
Quarter: 2017Q3

REPORT INFORMATION
  Report Type: Spontaneous
  Country: US (occurrence: None)
  Receive Date: 20170924
  Receipt Date: 20170924
  Transmission Date: 20171128
  Serious: No
  Sender: FDA-Public Use
  Company Number: None

PATIENT
  Age: 83 Year
  Sex: Female

DRUGS (1)
  1. XELJANZ [Suspect]
     Active Substance: TOFACITINIB CITRATE
     Indication: RHEUMATOID ARTHRITIS
     Route: 048
     Dates: start: 20161027

REACTIONS (4)
  - Nausea [None]
  - Oesophageal pain [None]
  - Dyspepsia [None]
  - Vomiting [None]

NARRATIVE: CASE EVENT DATE: 20170911
